FAERS Safety Report 18694897 (Version 1)
Quarter: 2021Q1

REPORT INFORMATION
  Report Type: Spontaneous
  Country: US (occurrence: US)
  Receive Date: 20210101
  Receipt Date: 20210101
  Transmission Date: 20210419
  Serious: Yes (Hospitalization)
  Sender: FDA-Public Use
  Company Number: None

PATIENT
  Age: 45 Year
  Sex: Female

DRUGS (11)
  1. AMOX/L CLAV [Concomitant]
  2. GABAPENTIN. [Concomitant]
     Active Substance: GABAPENTIN
  3. LOSARTAN. [Concomitant]
     Active Substance: LOSARTAN
  4. PANTOPRAZOLE [Concomitant]
     Active Substance: PANTOPRAZOLE
  5. POLYETH GLYC POW [Concomitant]
  6. GENTAMICIN. [Concomitant]
     Active Substance: GENTAMICIN
  7. DULOXETINE. [Concomitant]
     Active Substance: DULOXETINE
  8. HYDROXYZ [Concomitant]
     Active Substance: HYDROXYZINE HYDROCHLORIDE
  9. SILVER SULFA CREA [Concomitant]
  10. TALTZ [Suspect]
     Active Substance: IXEKIZUMAB
     Indication: PSORIASIS
     Dosage: ?          OTHER FREQUENCY:Q4WKS;?
     Route: 058
     Dates: start: 20181128
  11. SSD [Concomitant]
     Active Substance: SILVER SULFADIAZINE

REACTIONS (1)
  - Toe operation [None]

NARRATIVE: CASE EVENT DATE: 20201205
